FAERS Safety Report 5258632-7 (Version None)
Quarter: 2007Q1

REPORT INFORMATION
  Report Type: 
  Country: None (occurrence: None)
  Receive Date: 20070305
  Receipt Date: 20070220
  Transmission Date: 20070707
  Serious: Yes (Disabling)
  Sender: FDA-Public Use
  Company Number: OSCN-NO-0609S-0264

PATIENT
  Age: 72 Year
  Sex: Male
  Weight: 82 kg

DRUGS (5)
  1. OMNISCAN [Suspect]
     Indication: TRANSPLANT FAILURE
     Dosage: 20 ML, SINGLE DOSE, I.V.
     Route: 042
     Dates: start: 20060724, end: 20060724
  2. TACROLIMUS (TACROLIMUS) [Concomitant]
  3. UNSPECIFIED CORTICOSTEROIDS [Concomitant]
  4. MYCOPHENOLATE MOFETIL [Concomitant]
  5. TRIMETHOPRIM SULFAMETHOXAZOLE (EUSAPRIM) [Concomitant]

REACTIONS (1)
  - NEPHROGENIC FIBROSING DERMOPATHY [None]
